FAERS Safety Report 8172469-0 (Version None)
Quarter: 2012Q1

REPORT INFORMATION
  Report Type: 
  Country: None (occurrence: None)
  Receive Date: 20120227
  Receipt Date: 20120227
  Transmission Date: 20120608
  Serious: Yes (Hospitalization)
  Sender: FDA-Public Use
  Company Number: None

PATIENT
  Age: 75 Year
  Sex: Male
  Weight: 84 kg

DRUGS (1)
  1. IRON DEXTRAN [Suspect]
     Dates: start: 20111205, end: 20111205

REACTIONS (4)
  - PROCEDURAL HYPOTENSION [None]
  - ANAPHYLACTIC REACTION [None]
  - NO THERAPEUTIC RESPONSE [None]
  - ERYTHEMA [None]
